FAERS Safety Report 10023596 (Version 4)
Quarter: 2014Q2

REPORT INFORMATION
  Report Type: Report from Study
  Country: CA (occurrence: CA)
  Receive Date: 20140320
  Receipt Date: 20140408
  Transmission Date: 20141212
  Serious: Yes (Life-Threatening)
  Sender: FDA-Public Use
  Company Number: CA-JNJFOC-20140311795

PATIENT
  Sex: Female

DRUGS (12)
  1. SIMPONI [Suspect]
     Indication: RHEUMATOID ARTHRITIS
     Route: 058
     Dates: start: 20120117, end: 20140320
  2. METHOTREXATE [Concomitant]
     Indication: RHEUMATOID ARTHRITIS
     Route: 048
     Dates: start: 20111121
  3. LEFLUNOMIDE [Concomitant]
     Route: 065
  4. SULFASALAZINE [Concomitant]
     Route: 065
  5. CELEBREX [Concomitant]
     Indication: RHEUMATOID ARTHRITIS
     Route: 048
     Dates: start: 20130528
  6. RISEDRONATE [Concomitant]
     Indication: OSTEOPOROSIS
     Route: 048
     Dates: start: 20120628
  7. SERTRALINE [Concomitant]
     Route: 048
     Dates: start: 20111019
  8. TAUROLIDINE [Concomitant]
     Indication: URINARY TRACT INFECTION
     Route: 048
  9. AMLODIPINE [Concomitant]
     Indication: BLOOD PRESSURE
     Route: 048
     Dates: start: 20111121
  10. BENAZEPRIL [Concomitant]
     Indication: HYPERTENSION
     Route: 048
     Dates: start: 20111121
  11. LANSOPRAZOLE [Concomitant]
     Indication: ANTACID THERAPY
     Route: 048
     Dates: start: 20111121
  12. KCL [Concomitant]
     Indication: HYPOKALAEMIA
     Route: 048
     Dates: start: 20111121

REACTIONS (1)
  - Squamous cell carcinoma of skin [Recovering/Resolving]
